FAERS Safety Report 4942340-3 (Version None)
Quarter: 2006Q1

REPORT INFORMATION
  Report Type: 
  Country: None (occurrence: None)
  Receive Date: 20060313
  Receipt Date: 20051229
  Transmission Date: 20060701
  Serious: Yes (Other)
  Sender: FDA-Public Use
  Company Number: US-GLAXOSMITHKLINE-A0587217A

PATIENT
  Age: 46 Year
  Sex: Female

DRUGS (1)
  1. NICORETTE (MINT) [Suspect]
     Dosage: 2MG SEE DOSAGE TEXT
     Dates: start: 20050101

REACTIONS (1)
  - DRUG ABUSER [None]
